FAERS Safety Report 8423773-X (Version None)
Quarter: 2012Q2

REPORT INFORMATION
  Report Type: 
  Country: None (occurrence: None)
  Receive Date: 20120608
  Receipt Date: 20120601
  Transmission Date: 20120825
  Serious: Yes (Hospitalization)
  Sender: FDA-Public Use
  Company Number: JP-PFIZER INC-2012131684

PATIENT
  Age: 63 Year
  Sex: Female
  Weight: 46.7 kg

DRUGS (14)
  1. ETHAMBUTOL HYDROCHLORIDE [Concomitant]
     Indication: MYCOBACTERIUM AVIUM COMPLEX INFECTION
     Dosage: 750 MG, 1X/DAY
     Route: 048
     Dates: start: 20090301
  2. CEFAZOLIN SODIUM [Concomitant]
     Dosage: 1 G, 3X/DAY
     Route: 048
  3. RIFABUTIN [Suspect]
     Dosage: 40 MG, 1X/DAY
     Route: 048
     Dates: start: 20101127, end: 20101129
  4. CLARITHROMYCIN [Concomitant]
     Indication: MYCOBACTERIUM AVIUM COMPLEX INFECTION
     Dosage: 200 MG, 3X/DAY
     Route: 048
     Dates: start: 20090301
  5. MUCOSTA [Concomitant]
     Dosage: 100 MG, 2X/DAY
     Route: 048
  6. PREDNISOLONE [Concomitant]
     Dosage: 2 MG, 2X/DAY
     Route: 048
  7. RIFABUTIN [Suspect]
     Indication: MYCOBACTERIUM AVIUM COMPLEX INFECTION
     Dosage: 200 MG, 1X/DAY
     Route: 048
     Dates: start: 20101006, end: 20101102
  8. RIFABUTIN [Suspect]
     Dosage: 20 MG, 1X/DAY
     Route: 048
     Dates: start: 20101124, end: 20101126
  9. RISEDRONATE SODIUM [Concomitant]
     Dosage: 17.5 MG, WEEKLY
     Route: 048
  10. CLINORIL [Concomitant]
     Dosage: 100 MG, 2X/DAY
     Route: 048
  11. RIFABUTIN [Suspect]
     Dosage: 150 MG, 1X/DAY
     Route: 048
     Dates: start: 20101215, end: 20101220
  12. STREPTOMYCIN [Concomitant]
     Indication: MYCOBACTERIUM AVIUM COMPLEX INFECTION
     Dosage: 200 MG, 3X/WEEK
     Route: 030
     Dates: start: 20101006, end: 20101219
  13. RIFABUTIN [Suspect]
     Dosage: 80 MG, 1X/DAY
     Route: 048
     Dates: start: 20101130, end: 20101202
  14. RIFABUTIN [Suspect]
     Dosage: 160 MG, 1X/DAY
     Route: 048
     Dates: start: 20101203, end: 20101214

REACTIONS (2)
  - INTERSTITIAL LUNG DISEASE [None]
  - LIVER DISORDER [None]
